FAERS Safety Report 11043895 (Version 4)
Quarter: 2016Q3

REPORT INFORMATION
  Report Type: Spontaneous
  Country: US (occurrence: US)
  Receive Date: 20150417
  Receipt Date: 20160913
  Transmission Date: 20161109
  Serious: Yes (Other)
  Sender: FDA-Public Use
  Company Number: US-009507513-1504USA017089

PATIENT
  Sex: Male
  Weight: 121.1 kg

DRUGS (3)
  1. PROPECIA [Suspect]
     Active Substance: FINASTERIDE
     Dosage: 1 MG, UNK
     Route: 048
     Dates: start: 20060406, end: 20061127
  2. PROPECIA [Suspect]
     Active Substance: FINASTERIDE
     Indication: ANDROGENETIC ALOPECIA
     Dosage: 1 MG, UNK
     Route: 048
     Dates: start: 1998, end: 20050221
  3. DIURETIC (UNSPECIFIED) [Concomitant]
     Active Substance: UNSPECIFIED INGREDIENT
     Dosage: UNK
     Route: 065
     Dates: start: 1996

REACTIONS (20)
  - Joint injury [Unknown]
  - Sexual dysfunction [Not Recovered/Not Resolved]
  - Anxiety [Not Recovered/Not Resolved]
  - Lymphadenectomy [Unknown]
  - Joint injury [Unknown]
  - Anal fissure [Unknown]
  - Depression [Not Recovered/Not Resolved]
  - Cyst [Unknown]
  - Non-Hodgkin^s lymphoma [Unknown]
  - Joint injury [Unknown]
  - Erectile dysfunction [Not Recovered/Not Resolved]
  - Loss of libido [Unknown]
  - Hypoacusis [Unknown]
  - Hair transplant [Unknown]
  - Emotional distress [Not Recovered/Not Resolved]
  - Orgasmic sensation decreased [Unknown]
  - Semen volume decreased [Unknown]
  - Hypertension [Unknown]
  - Sleep apnoea syndrome [Unknown]
  - Biopsy [Unknown]

NARRATIVE: CASE EVENT DATE: 2000
